FAERS Safety Report 5613535-0 (Version None)
Quarter: 2008Q1

REPORT INFORMATION
  Report Type: 
  Country: None (occurrence: None)
  Receive Date: 20080130
  Receipt Date: 20080114
  Transmission Date: 20080703
  Serious: Yes (Death)
  Sender: FDA-Public Use
  Company Number: 2008S1000104

PATIENT
  Age: 49 Year
  Sex: Female

DRUGS (2)
  1. METHADONE HCL [Suspect]
     Dosage: ; PO
     Route: 048
     Dates: end: 20060101
  2. HYDROCODONE BITARTRATE [Suspect]
     Dosage: ; PO
     Route: 048
     Dates: end: 20060101

REACTIONS (1)
  - DEATH [None]
